APPROVED DRUG PRODUCT: DEXTROSE 5% IN PLASTIC CONTAINER
Active Ingredient: DEXTROSE
Strength: 50MG/ML
Dosage Form/Route: INJECTABLE;INJECTION
Application: N016673 | Product #003 | TE Code: AP
Applicant: BAXTER HEALTHCARE CORP
Approved: Oct 30, 1985 | RLD: Yes | RS: Yes | Type: RX